FAERS Safety Report 9938903 (Version 1)
Quarter: 2014Q1

REPORT INFORMATION
  Report Type: Report from Study
  Country: US (occurrence: US)
  Receive Date: 20140303
  Receipt Date: 20140303
  Transmission Date: 20141002
  Serious: No
  Sender: FDA-Public Use
  Company Number: US-ABBVIE-13P-163-1038238-00

PATIENT
  Age: 65 Year
  Sex: Female

DRUGS (5)
  1. HUMIRA [Suspect]
     Indication: RHEUMATOID ARTHRITIS
     Dates: start: 201210
  2. LOSARTAN [Concomitant]
     Indication: BLOOD PRESSURE
  3. GABAPENTIN [Concomitant]
     Indication: HERPES ZOSTER
  4. LIDOCAINE [Concomitant]
     Indication: HERPES ZOSTER
     Dosage: PATCH; AS NEEDED
  5. CITOLAPRAM [Concomitant]
     Indication: INCREASED APPETITE

REACTIONS (3)
  - Injection site pain [Not Recovered/Not Resolved]
  - Pain in jaw [Unknown]
  - Oropharyngeal pain [Unknown]
